FAERS Safety Report 21196028 (Version 1)
Quarter: 2022Q3

REPORT INFORMATION
  Report Type: Spontaneous
  Country: US (occurrence: None)
  Receive Date: 20220810
  Receipt Date: 20220810
  Transmission Date: 20221026
  Serious: Yes (Hospitalization)
  Sender: FDA-Public Use
  Company Number: None

PATIENT
  Age: 55 Year
  Sex: Female
  Weight: 69.75 kg

DRUGS (10)
  1. MAGNESIUM CITRATE LEMON [Suspect]
     Active Substance: MAGNESIUM CITRATE
     Indication: Preoperative care
     Dosage: OTHER QUANTITY : 10 OUNCE(S);?OTHER FREQUENCY : 1-DAY PRIOR SURGER;?
     Route: 048
     Dates: start: 20220626, end: 20220626
  2. AMLODIPINE [Concomitant]
  3. ATORVASTATIN [Concomitant]
     Active Substance: ATORVASTATIN
  4. BUPROPION HYDROCHLORIDE [Concomitant]
     Active Substance: BUPROPION HYDROCHLORIDE
  5. WELLBUTRIN [Concomitant]
     Active Substance: BUPROPION HYDROCHLORIDE
  6. CLONAZEPAM [Concomitant]
     Active Substance: CLONAZEPAM
  7. CYMBALTA [Concomitant]
     Active Substance: DULOXETINE HYDROCHLORIDE
  8. VYVANSE [Concomitant]
  9. VITAMIN C [Concomitant]
     Active Substance: ASCORBIC ACID
  10. VITA D [Concomitant]

REACTIONS (11)
  - Pain [None]
  - Pyrexia [None]
  - Chills [None]
  - Post procedural infection [None]
  - Back pain [None]
  - Skin graft [None]
  - Psoas abscess [None]
  - Retroperitoneal abscess [None]
  - Thrombocytosis [None]
  - Myalgia [None]
  - Abdominal abscess [None]

NARRATIVE: CASE EVENT DATE: 20220711
